FAERS Safety Report 4999547-9 (Version None)
Quarter: 2006Q2

REPORT INFORMATION
  Report Type: 
  Country: None (occurrence: None)
  Receive Date: 20060511
  Receipt Date: 20060508
  Transmission Date: 20061013
  Serious: Yes (Hospitalization)
  Sender: FDA-Public Use
  Company Number: JP-MERCK-0605USA01513

PATIENT
  Age: 81 Year
  Sex: Male

DRUGS (5)
  1. FOSAMAX [Suspect]
     Indication: OSTEOPOROSIS
     Route: 048
     Dates: start: 20060101
  2. CONIEL [Concomitant]
     Indication: HYPERTENSION
     Route: 065
  3. OLMETIC [Concomitant]
     Indication: HYPERTENSION
     Route: 065
  4. TAKEPRON [Concomitant]
     Route: 065
  5. DASEN [Concomitant]
     Route: 065

REACTIONS (2)
  - ASPARTATE AMINOTRANSFERASE INCREASED [None]
  - URTICARIA [None]
